FAERS Safety Report 5220837-9 (Version None)
Quarter: 2007Q1

REPORT INFORMATION
  Report Type: 
  Country: None (occurrence: None)
  Receive Date: 20070123
  Receipt Date: 20070112
  Transmission Date: 20070707
  Serious: Yes (Other)
  Sender: FDA-Public Use
  Company Number: FRWYE164515JAN07

PATIENT
  Age: 32 Year
  Sex: Female

DRUGS (3)
  1. EFFEXOR [Suspect]
     Indication: DEPRESSION
     Dosage: 150 MG TOTAL DAILY; 200 MG TOTAL DAILY; 150 MG TOTAL DAILY WITH EPISODIC INTAKES OF 300 TO 350 MG TO
     Route: 048
     Dates: start: 20050101, end: 20060101
  2. EFFEXOR [Suspect]
     Indication: DEPRESSION
     Dosage: 150 MG TOTAL DAILY; 200 MG TOTAL DAILY; 150 MG TOTAL DAILY WITH EPISODIC INTAKES OF 300 TO 350 MG TO
     Route: 048
     Dates: start: 20060101, end: 20060101
  3. EFFEXOR [Suspect]
     Indication: DEPRESSION
     Dosage: 150 MG TOTAL DAILY; 200 MG TOTAL DAILY; 150 MG TOTAL DAILY WITH EPISODIC INTAKES OF 300 TO 350 MG TO
     Route: 048
     Dates: start: 20060101

REACTIONS (1)
  - DRUG ABUSER [None]
